FAERS Safety Report 12894314 (Version 7)
Quarter: 2017Q4

REPORT INFORMATION
  Report Type: Report from Study
  Country: ES (occurrence: ES)
  Receive Date: 20161028
  Receipt Date: 20171222
  Transmission Date: 20180320
  Serious: Yes (Hospitalization, Other)
  Sender: FDA-Public Use
  Company Number: ES-SA-2016SA182463

PATIENT
  Age: 37 Year
  Sex: Female

DRUGS (8)
  1. TERBASMIN [Concomitant]
     Active Substance: TERBUTALINE SULFATE
     Indication: ASTHMA
     Dosage: FREQ: 1-0-1
     Dates: start: 201603
  2. PARACETAMOL [Concomitant]
     Active Substance: ACETAMINOPHEN
     Indication: PROPHYLAXIS
     Route: 042
     Dates: start: 20160918, end: 20160926
  3. BROMAZEPAM [Concomitant]
     Active Substance: BROMAZEPAM
     Indication: INSOMNIA
     Dosage: FREQ: 0-0-1
     Route: 048
     Dates: start: 2016
  4. SYMBICORT [Concomitant]
     Active Substance: BUDESONIDE\FORMOTEROL FUMARATE DIHYDRATE
     Indication: ASTHMA
     Dates: start: 201603
  5. CEMIDON [Concomitant]
     Active Substance: ISONIAZID
     Indication: TUBERCULOSIS
     Dosage: FREQ: 1-0-0
     Route: 048
     Dates: start: 201603
  6. LEMTRADA [Suspect]
     Active Substance: ALEMTUZUMAB
     Indication: MULTIPLE SCLEROSIS
     Route: 041
     Dates: start: 20160919, end: 20160923
  7. LEXATIN (BROMAZEPAM) [Concomitant]
     Active Substance: BROMAZEPAM
     Indication: INSOMNIA
     Dosage: FREQ: 0-0-1
     Route: 048
     Dates: start: 2013
  8. XALATAN [Concomitant]
     Active Substance: LATANOPROST
     Indication: GLAUCOMA
     Dosage: 2 DROPS AT NIGHT
     Dates: start: 2016

REACTIONS (25)
  - Nausea [Recovered/Resolved]
  - Eye operation [Recovered/Resolved]
  - Menstrual disorder [Recovered/Resolved]
  - Abdominal discomfort [Recovered/Resolved]
  - Pruritus generalised [Recovered/Resolved]
  - Urinary tract infection [Recovered/Resolved]
  - Pyrexia [Recovered/Resolved]
  - Dysuria [Recovered/Resolved]
  - Chills [Recovered/Resolved]
  - Fatigue [Not Recovered/Not Resolved]
  - Abdominal pain upper [Recovered/Resolved]
  - Malaise [Recovered/Resolved]
  - Urticaria [Recovered/Resolved]
  - Dysmenorrhoea [Unknown]
  - White blood cell count decreased [Recovering/Resolving]
  - Listeriosis [Recovered/Resolved]
  - Hyperhidrosis [Recovered/Resolved]
  - Haematoma [Recovered/Resolved]
  - Platelet count decreased [Recovered/Resolved]
  - Vomiting [Recovered/Resolved]
  - Back pain [Recovered/Resolved]
  - Headache [Recovered/Resolved]
  - Cough [Recovered/Resolved]
  - Bacterial test positive [Recovered/Resolved]
  - Hyperhidrosis [Recovered/Resolved]

NARRATIVE: CASE EVENT DATE: 2016
